FAERS Safety Report 10301463 (Version 1)
Quarter: 2014Q3

REPORT INFORMATION
  Report Type: Report from Study
  Country: US (occurrence: US)
  Receive Date: 20140714
  Receipt Date: 20140714
  Transmission Date: 20150326
  Serious: Yes (Hospitalization)
  Sender: FDA-Public Use
  Company Number: PHEH2014US013696

PATIENT
  Sex: Male

DRUGS (19)
  1. COLACE [Concomitant]
     Active Substance: DOCUSATE SODIUM
     Dosage: UKN
  2. FLUOXETINE [Concomitant]
     Active Substance: FLUOXETINE\FLUOXETINE HYDROCHLORIDE
     Dosage: UKN
  3. PROVENTIL HFA//SALBUTAMOL [Concomitant]
     Dosage: UKN
  4. SPIRIVA [Concomitant]
     Active Substance: TIOTROPIUM BROMIDE MONOHYDRATE
     Dosage: UKN
  5. TOBRAMYCIN [Suspect]
     Active Substance: TOBRAMYCIN
     Dosage: 300 MG, TWICE A DAY
     Route: 055
  6. ATORVASTATIN CALCIUM. [Concomitant]
     Active Substance: ATORVASTATIN CALCIUM
     Dosage: UKN
  7. EPINEPHRINE. [Concomitant]
     Active Substance: EPINEPHRINE
     Dosage: UKN
  8. POTASSIUM CHLORIDE. [Concomitant]
     Active Substance: POTASSIUM CHLORIDE
     Dosage: UKN
  9. FUROSEMIDE. [Concomitant]
     Active Substance: FUROSEMIDE
     Dosage: UKN
  10. BUPRENORPHINE HCL [Concomitant]
     Active Substance: BUPRENORPHINE HYDROCHLORIDE
     Dosage: UKN
  11. LAMOTRIGINE. [Concomitant]
     Active Substance: LAMOTRIGINE
     Dosage: UKN
  12. OXYGEN. [Concomitant]
     Active Substance: OXYGEN
     Dosage: UKN
  13. ADVAIR DISKUS [Concomitant]
     Active Substance: FLUTICASONE PROPIONATE\SALMETEROL XINAFOATE
     Dosage: UKN
  14. NICODERM CQ [Concomitant]
     Active Substance: NICOTINE
     Dosage: UKN
  15. FLUCONAZOLE. [Concomitant]
     Active Substance: FLUCONAZOLE
     Dosage: UKN
  16. LISINOPRIL. [Concomitant]
     Active Substance: LISINOPRIL
     Dosage: UKN
  17. METFORMIN [Concomitant]
     Active Substance: METFORMIN HYDROCHLORIDE
     Dosage: UKN
  18. PROMETHAZINE [Concomitant]
     Active Substance: PROMETHAZINE\PROMETHAZINE HYDROCHLORIDE
     Dosage: UKN
  19. ASPIRIN. [Concomitant]
     Active Substance: ASPIRIN
     Dosage: UKN

REACTIONS (7)
  - Abasia [Unknown]
  - Sputum increased [Unknown]
  - Feeling abnormal [Unknown]
  - Respiratory disorder [Unknown]
  - Mobility decreased [Unknown]
  - Sputum discoloured [Unknown]
  - Dyspnoea exertional [Unknown]
